FAERS Safety Report 8831388 (Version 4)
Quarter: 2013Q1

REPORT INFORMATION
  Report Type: Other
  Country: GB (occurrence: GB)
  Receive Date: 20121009
  Receipt Date: 20130212
  Transmission Date: 20140127
  Serious: Yes (Disabling, Other)
  Sender: FDA-Public Use
  Company Number: GB-WATSON-2012-16920

PATIENT
  Age: 64 Year
  Sex: Female
  Weight: 48 kg

DRUGS (9)
  1. SIMVASTATIN (UNKNOWN) [Suspect]
     Indication: HYPERLIPIDAEMIA
     Dosage: 40 MG, UNK, DRUG STOPPED AFTER 1 MONTH OF 28-JAN-10, ALSO TOOK FROM 14-MAY-10,STOPPED AFTER 1 MONTH.
     Route: 048
     Dates: start: 20100128
  2. PRAVASTATIN SODIUM [Suspect]
     Indication: HYPERLIPIDAEMIA
     Dosage: ALSO TOOK 40 MG ON 01-MAR-10, STOPPED AFTER 2 MONTH AND 20 MG ON 16-MAR-10, STOPPED AFTER 1 MONTH
     Route: 048
     Dates: start: 20100205
  3. ATORVASTATIN (UNKNOWN) [Suspect]
     Indication: HYPERLIPIDAEMIA
     Dosage: 20 MG, UNK, DRUG STOPPED AFTER ONE MONTH.
     Route: 048
     Dates: start: 20100609
  4. AMLODIPINE [Concomitant]
     Indication: BLOOD PRESSURE INCREASED
     Dosage: 5 MG, DAILY
     Route: 048
     Dates: start: 20100326, end: 20100401
  5. PROTHIADEN [Concomitant]
     Indication: DEPRESSION
     Dosage: 150 MG, UNKNOWN
     Route: 048
     Dates: start: 20040727
  6. SENNA                              /00142201/ [Concomitant]
     Indication: CONSTIPATION
     Dosage: 15 MG, DAILY, ONCE A NIGHT, STOPPED AFTER ONE MONTH. AGAIN STARTED FROM 05-OCT-2011 AND STOPPED AFTE
     Route: 048
     Dates: start: 20100205
  7. RANITIDINE [Concomitant]
     Indication: PRODUCT USED FOR UNKNOWN INDICATION
     Dosage: ACCORD^S RANITIDINE. INDICATION: DIGESTION
     Route: 065
  8. BENDROFLUMETHIAZIDE [Concomitant]
     Indication: PRODUCT USED FOR UNKNOWN INDICATION
     Dosage: 2.50 MG, DAILY
     Route: 048
     Dates: start: 20100401, end: 20100429
  9. PARACETAMOL [Concomitant]
     Indication: PAIN
     Dosage: 1 G, PRN
     Route: 048
     Dates: start: 20080129

REACTIONS (12)
  - Vision blurred [Unknown]
  - Diplopia [Unknown]
  - Pruritus [Not Recovered/Not Resolved]
  - Muscle spasms [Not Recovered/Not Resolved]
  - Weight decreased [Not Recovered/Not Resolved]
  - Local swelling [Unknown]
  - Paraesthesia [Unknown]
  - Skin depigmentation [Unknown]
  - Fatigue [Not Recovered/Not Resolved]
  - Ear discomfort [Unknown]
  - Hepatomegaly [Unknown]
  - Depression [Unknown]
